FAERS Safety Report 4891423-5 (Version None)
Quarter: 2005Q4

REPORT INFORMATION
  Report Type: 
  Country: None (occurrence: None)
  Receive Date: 20051220
  Receipt Date: 20051026
  Transmission Date: 20060501
  Serious: Yes (Other)
  Sender: FDA-Public Use
  Company Number: 422625

PATIENT
  Age: 71 Year
  Sex: Female
  Weight: 56.2 kg

DRUGS (5)
  1. BONIVA [Suspect]
     Indication: OSTEOPOROSIS
     Dosage: 150 MG 1 PER MONTH ORAL
     Route: 048
     Dates: start: 20050814
  2. ACTONEL [Suspect]
     Indication: OSTEOPOROSIS
     Dosage: 35 MG 1 PER WEEK ORAL
     Route: 048
  3. CALCIUM (CALCIUM) [Concomitant]
  4. VITAMINS + MINERALS (MINERALS NOS/MULTIVITAMIN NOS) [Concomitant]
  5. QUININE SULFATE [Concomitant]

REACTIONS (1)
  - DRY EYE [None]
